FAERS Safety Report 9297270 (Version 1)
Quarter: 2013Q2

REPORT INFORMATION
  Report Type: Spontaneous
  Country: US (occurrence: None)
  Receive Date: 20130517
  Receipt Date: 20130517
  Transmission Date: 20140414
  Serious: Yes (Death)
  Sender: FDA-Public Use
  Company Number: None

PATIENT
  Age: 57 Year
  Sex: Female
  Weight: 46.8 kg

DRUGS (1)
  1. XARELTO (RIVAROXABAN) 20 MG BOYCE, JANSSEN [Suspect]
     Indication: ATRIAL FIBRILLATION
     Dosage: PATIENT RECEIVED AS OUTPATIENT
     Route: 048

REACTIONS (2)
  - Brain stem syndrome [None]
  - Apparent death [None]
